FAERS Safety Report 23354781 (Version 1)
Quarter: 2024Q1

REPORT INFORMATION
  Report Type: Report from Study
  Country: US (occurrence: None)
  Receive Date: 20240101
  Receipt Date: 20240101
  Transmission Date: 20240409
  Serious: Yes (Hospitalization)
  Sender: FDA-Public Use
  Company Number: 2024A000472

PATIENT
  Sex: Female

DRUGS (12)
  1. TAGRISSO [Suspect]
     Active Substance: OSIMERTINIB
     Indication: Lung carcinoma cell type unspecified stage 0
     Route: 048
  2. IMODIUM A [Concomitant]
  3. CORTIZONE 10 [Concomitant]
     Active Substance: HYDROCORTISONE
  4. XULTOPHY SOP [Concomitant]
     Dosage: 3.6 UNIT
  5. AMLODIPINE B [Concomitant]
     Dosage: 10.0MG UNKNOWN
  6. ATORVASTATIN [Concomitant]
     Active Substance: ATORVASTATIN
     Dosage: 40.0MG UNKNOWN
  7. CARVEDILOL [Concomitant]
     Active Substance: CARVEDILOL
     Dosage: 12.5MG UNKNOWN
  8. FAMOTIDINE [Concomitant]
     Active Substance: FAMOTIDINE
     Dosage: 40.0MG UNKNOWN
  9. LETROZOLE [Concomitant]
     Active Substance: LETROZOLE
     Dosage: 2.5MG UNKNOWN
  10. LEVOTHYROXINE [Concomitant]
     Active Substance: LEVOTHYROXINE
     Dosage: 50.0MG UNKNOWN
  11. MONTELUKAST [Concomitant]
     Active Substance: MONTELUKAST SODIUM
  12. PANTOPRAZOLE [Concomitant]
     Active Substance: PANTOPRAZOLE
     Dosage: 20.0MG UNKNOWN

REACTIONS (2)
  - COVID-19 [Recovered/Resolved]
  - Acute sinusitis [Recovered/Resolved]
